FAERS Safety Report 4358059-6 (Version None)
Quarter: 2004Q2

REPORT INFORMATION
  Report Type: 
  Country: None (occurrence: None)
  Receive Date: 20040510
  Receipt Date: 20040426
  Transmission Date: 20050107
  Serious: No
  Sender: FDA-Public Use
  Company Number: 04P-163-0258803-00

PATIENT
  Sex: Female
  Weight: 99.7913 kg

DRUGS (5)
  1. HUMIRA [Suspect]
     Indication: RHEUMATOID ARTHRITIS
     Dosage: 40 MG, 1 IN 2 WK,  SUBCUTANEOUS
     Route: 058
     Dates: start: 20030501
  2. CELECOXIB [Concomitant]
  3. PENICILLIN [Concomitant]
  4. PREDNISONE [Concomitant]
  5. MULTIVITAMIN [Concomitant]

REACTIONS (2)
  - BONE GRAFT [None]
  - URTICARIA GENERALISED [None]
